FAERS Safety Report 8032682 (Version 3)
Quarter: 2013Q1

REPORT INFORMATION
  Report Type: Spontaneous
  Country: GB (occurrence: GB)
  Receive Date: 20110713
  Receipt Date: 20130222
  Transmission Date: 20140127
  Serious: Yes (Hospitalization, Other)
  Sender: FDA-Public Use
  Company Number: PHFR2011GB02549

PATIENT
  Sex: Female

DRUGS (1)
  1. CLOZARIL [Suspect]
     Route: 048
     Dates: start: 20091214

REACTIONS (6)
  - Neutropenia [Recovered/Resolved]
  - Acute myocardial infarction [Unknown]
  - Fluid intake reduced [Not Recovered/Not Resolved]
  - Eating disorder [Not Recovered/Not Resolved]
  - Mental impairment [Unknown]
  - White blood cell count decreased [Unknown]
